FAERS Safety Report 11603670 (Version 1)
Quarter: 2015Q4

REPORT INFORMATION
  Report Type: Spontaneous
  Country: US (occurrence: US)
  Receive Date: 20151007
  Receipt Date: 20151007
  Transmission Date: 20160304
  Serious: No
  Sender: FDA-Public Use
  Company Number: US-PAR PHARMACEUTICAL, INC-2015SCPR014181

PATIENT

DRUGS (2)
  1. FENTANYL TRANSDERMAL SYSTEM [Suspect]
     Active Substance: FENTANYL
     Dosage: UNK UNK, UNKNOWN
     Route: 062
     Dates: end: 2015
  2. FENTANYL TRANSDERMAL SYSTEM [Suspect]
     Active Substance: FENTANYL
     Indication: PRODUCT USED FOR UNKNOWN INDICATION
     Dosage: 1 DF, UNKNOWN
     Route: 062
     Dates: start: 20150731

REACTIONS (3)
  - No adverse event [Unknown]
  - Expired product administered [Unknown]
  - Drug dispensing error [Unknown]

NARRATIVE: CASE EVENT DATE: 2015
